FAERS Safety Report 11194563 (Version 1)
Quarter: 2015Q2

REPORT INFORMATION
  Report Type: Report from Study
  Country: BR (occurrence: BR)
  Receive Date: 20150616
  Receipt Date: 20150616
  Transmission Date: 20150821
  Serious: Yes (Death, Hospitalization)
  Sender: FDA-Public Use
  Company Number: PHHY2015BR071313

PATIENT
  Age: 95 Year
  Sex: Female
  Weight: 87 kg

DRUGS (3)
  1. OXYGEN. [Concomitant]
     Active Substance: OXYGEN
     Indication: PRODUCT USED FOR UNKNOWN INDICATION
     Route: 065
  2. DIOVAN [Suspect]
     Active Substance: VALSARTAN
     Indication: HYPERTENSION
     Route: 065
  3. EXELON PATCH [Suspect]
     Active Substance: RIVASTIGMINE
     Indication: DEMENTIA
     Dosage: 1 DF (10 CM2), QD
     Route: 065
     Dates: start: 2011, end: 20150522

REACTIONS (2)
  - Pneumonia [Fatal]
  - Renal failure [Fatal]

NARRATIVE: CASE EVENT DATE: 20150522
